FAERS Safety Report 9924053 (Version 1)
Quarter: 2014Q1

REPORT INFORMATION
  Report Type: Spontaneous
  Country: DE (occurrence: DE)
  Receive Date: 20140225
  Receipt Date: 20140225
  Transmission Date: 20141002
  Serious: Yes (Congenital Anomaly)
  Sender: FDA-Public Use
  Company Number: DE-MYLANLABS-2014S1003254

PATIENT
  Age: 0 Year
  Sex: Male
  Weight: 3.8 kg

DRUGS (4)
  1. AZATHIOPRINE [Suspect]
     Indication: COLITIS ULCERATIVE
     Dosage: 150 [MG/D (VATER) ]
     Route: 064
     Dates: start: 20070922, end: 20080629
  2. MICROGYNON [Concomitant]
     Indication: ORAL CONTRACEPTION
     Dosage: 0.03 [MG/D (MOTHER) ] / 0.15 [MG/D (MOTHER) ]
     Route: 064
  3. MESALAZINE [Concomitant]
     Indication: COLITIS ULCERATIVE
     Dosage: 150 [MG/D FATHER) ]
     Route: 064
     Dates: start: 20070922, end: 20080629
  4. FOLIO FORTE [Concomitant]
     Indication: PROPHYLAXIS OF NEURAL TUBE DEFECT
     Dosage: 0.8 [MG/D ]
     Route: 064

REACTIONS (2)
  - Hypospadias [Recovered/Resolved with Sequelae]
  - Exposure via father [Recovered/Resolved]
